FAERS Safety Report 6839556-8 (Version None)
Quarter: 2010Q3

REPORT INFORMATION
  Report Type: 
  Country: None (occurrence: None)
  Receive Date: 20100714
  Receipt Date: 20100312
  Transmission Date: 20110219
  Serious: No
  Sender: FDA-Public Use
  Company Number: A0843886A

PATIENT
  Age: 73 Year
  Sex: Female

DRUGS (6)
  1. FLOVENT [Suspect]
     Indication: ASTHMA
     Dosage: 2PUFF TWICE PER DAY
     Route: 055
     Dates: start: 20070101, end: 20100101
  2. ASPIRIN [Concomitant]
  3. MULTI-VITAMIN [Concomitant]
  4. AVAPRO [Concomitant]
  5. CALCIUM PLUS D [Concomitant]
  6. VYTORIN [Concomitant]

REACTIONS (1)
  - DYSPHONIA [None]
